FAERS Safety Report 5933996-7 (Version None)
Quarter: 2008Q4

REPORT INFORMATION
  Report Type: 
  Country: None (occurrence: None)
  Receive Date: 20081029
  Receipt Date: 20081020
  Transmission Date: 20090506
  Serious: Yes (Other)
  Sender: FDA-Public Use
  Company Number: JP-AVENTIS-200813278JP

PATIENT
  Age: 41 Year
  Sex: Female
  Weight: 68.4 kg

DRUGS (13)
  1. ARAVA [Suspect]
     Indication: RHEUMATOID ARTHRITIS
     Route: 048
     Dates: start: 20061205, end: 20061207
  2. ARAVA [Suspect]
     Route: 048
     Dates: start: 20061208, end: 20070223
  3. PENTCILLIN [Suspect]
     Indication: URINARY TRACT INFECTION
     Route: 041
     Dates: start: 20070211, end: 20070214
  4. PENTCILLIN [Suspect]
     Route: 041
     Dates: start: 20070215, end: 20070215
  5. DALACIN-S [Suspect]
     Indication: URINARY TRACT INFECTION
     Route: 041
     Dates: start: 20070211, end: 20070214
  6. DALACIN-S [Suspect]
     Route: 041
     Dates: start: 20070215, end: 20070215
  7. MINOCYCLINE HCL [Suspect]
     Indication: RHEUMATOID ARTHRITIS
     Route: 041
     Dates: start: 20070215, end: 20070223
  8. PREDNISOLONE [Suspect]
     Indication: RHEUMATOID ARTHRITIS
     Route: 048
  9. VOLTAREN-XR [Concomitant]
     Indication: RHEUMATOID ARTHRITIS
     Route: 048
  10. MUCOSTA [Concomitant]
     Indication: GASTRITIS PROPHYLAXIS
     Route: 048
  11. FERROMIA                           /00023516/ [Concomitant]
     Route: 048
  12. RABEPRAZOLE SODIUM [Concomitant]
     Route: 048
  13. BASEN [Concomitant]
     Route: 048

REACTIONS (3)
  - ALANINE AMINOTRANSFERASE INCREASED [None]
  - ASPARTATE AMINOTRANSFERASE INCREASED [None]
  - URINARY TRACT INFECTION [None]
